FAERS Safety Report 5063797-6 (Version None)
Quarter: 2006Q3

REPORT INFORMATION
  Report Type: 
  Country: None (occurrence: None)
  Receive Date: 20060724
  Receipt Date: 20060714
  Transmission Date: 20061208
  Serious: Yes (Other)
  Sender: FDA-Public Use
  Company Number: 163-20785-06070437

PATIENT
  Sex: Female

DRUGS (1)
  1. THALOMID [Suspect]
     Indication: MULTIPLE MYELOMA
     Dosage: 3 IN 1 D
     Dates: start: 20040427, end: 20060101

REACTIONS (3)
  - CATARACT [None]
  - DRUG INEFFECTIVE [None]
  - HYPOAESTHESIA [None]
